FAERS Safety Report 5520164-6 (Version None)
Quarter: 2007Q4

REPORT INFORMATION
  Report Type: 
  Country: None (occurrence: None)
  Receive Date: 20071116
  Receipt Date: 20071023
  Transmission Date: 20080405
  Serious: No
  Sender: FDA-Public Use
  Company Number: US-BOEHRINGER INGELHEIM PHARMACEUTICALS, INC.-2007-BP-11576BP

PATIENT
  Sex: Male

DRUGS (7)
  1. FLOMAX [Suspect]
     Indication: BENIGN PROSTATIC HYPERPLASIA
     Route: 048
     Dates: start: 20070601
  2. REQUIP [Concomitant]
     Indication: PARKINSON'S DISEASE
  3. STALEVO 100 [Concomitant]
  4. ALTACE [Concomitant]
  5. PLAVIX [Concomitant]
  6. LIPITOR [Concomitant]
  7. METOPROLOL TARTRATE [Concomitant]

REACTIONS (4)
  - INCONTINENCE [None]
  - LIBIDO DECREASED [None]
  - SPERM COUNT DECREASED [None]
  - SPERM COUNT ZERO [None]
